FAERS Safety Report 17731376 (Version 1)
Quarter: 2020Q2

REPORT INFORMATION
  Report Type: Spontaneous
  Country: EC (occurrence: EC)
  Receive Date: 20200430
  Receipt Date: 20200430
  Transmission Date: 20200714
  Serious: Yes (Disabling)
  Sender: FDA-Public Use
  Company Number: EC-BIOMARINAP-EC-2020-129813

PATIENT
  Age: 5 Year
  Sex: Female

DRUGS (1)
  1. NAGLAZYME [Suspect]
     Active Substance: GALSULFASE
     Indication: MUCOPOLYSACCHARIDOSIS VI
     Dosage: 12 MILLIGRAM, QW
     Route: 042
     Dates: start: 201908

REACTIONS (3)
  - Visual impairment [Unknown]
  - Mobility decreased [Recovering/Resolving]
  - Developmental hip dysplasia [Recovering/Resolving]
